FAERS Safety Report 8134408-8 (Version None)
Quarter: 2012Q1

REPORT INFORMATION
  Report Type: 
  Country: None (occurrence: None)
  Receive Date: 20120209
  Receipt Date: 20120125
  Transmission Date: 20120608
  Serious: Yes (Other)
  Sender: FDA-Public Use
  Company Number: US-2012-10072

PATIENT
  Age: 4 Year
  Sex: Male

DRUGS (5)
  1. THIOTEPA [Concomitant]
  2. BUSULFAN [Suspect]
     Indication: STEM CELL TRANSPLANT
     Dosage: UNKNOWN
  3. ATG (ANTILYMPHOCYTE IMMUNOGLOBULIN (HORSE)) [Concomitant]
  4. CYCLOPHOSPHAMIDE [Concomitant]
  5. FLUDARABINE PHOSPHATE [Concomitant]

REACTIONS (8)
  - PERIORBITAL OEDEMA [None]
  - WEIGHT INCREASED [None]
  - PERICARDIAL EFFUSION [None]
  - POLYSEROSITIS [None]
  - OEDEMA PERIPHERAL [None]
  - PULMONARY EMBOLISM [None]
  - GENERALISED OEDEMA [None]
  - PLEURAL EFFUSION [None]
